FAERS Safety Report 25524697 (Version 1)
Quarter: 2025Q3

REPORT INFORMATION
  Report Type: Spontaneous
  Country: US (occurrence: None)
  Receive Date: 20250704
  Receipt Date: 20250704
  Transmission Date: 20251021
  Serious: Yes (Death)
  Sender: FDA-CTU
  Company Number: None

PATIENT
  Age: 77 Year
  Sex: Female

DRUGS (9)
  1. PIRFENIDONE [Suspect]
     Active Substance: PIRFENIDONE
     Indication: Pulmonary fibrosis
     Dosage: 3 CAPSULES OF 267MG TID ORAL? ?
     Route: 048
     Dates: end: 20250703
  2. AMIODARONE [Concomitant]
     Active Substance: AMIODARONE
  3. ATORVASTATIN [Concomitant]
     Active Substance: ATORVASTATIN
  4. BISOPROLOL FUMARATE [Concomitant]
     Active Substance: BISOPROLOL FUMARATE
  5. ELIQUIS [Concomitant]
     Active Substance: APIXABAN
  6. GLIMEPIRIDE [Concomitant]
     Active Substance: GLIMEPIRIDE
  7. KLONOPIN [Concomitant]
     Active Substance: CLONAZEPAM
  8. SYNTHROID [Concomitant]
     Active Substance: LEVOTHYROXINE SODIUM
  9. XANAX [Concomitant]
     Active Substance: ALPRAZOLAM

REACTIONS (2)
  - Disease complication [None]
  - Pulmonary fibrosis [None]

NARRATIVE: CASE EVENT DATE: 20250703
